FAERS Safety Report 17521364 (Version 1)
Quarter: 2020Q1

REPORT INFORMATION
  Report Type: Report from Study
  Country: IT (occurrence: IT)
  Receive Date: 20200310
  Receipt Date: 20200310
  Transmission Date: 20200409
  Serious: Yes (Hospitalization)
  Sender: FDA-Public Use
  Company Number: IT-MYLANLABS-2020M1024746

PATIENT
  Age: 64 Year
  Sex: Female
  Weight: 65 kg

DRUGS (3)
  1. QUETIAPINE. [Suspect]
     Active Substance: QUETIAPINE
     Indication: MENTAL DISORDER
     Dosage: 600 MILLIGRAM, TOTAL
     Route: 048
     Dates: start: 20200127, end: 20200127
  2. LITHIUM CARBONATE. [Suspect]
     Active Substance: LITHIUM CARBONATE
     Indication: MENTAL DISORDER
     Dosage: 900 MILLIGRAM, QD
     Route: 048
     Dates: start: 20150127, end: 20200127
  3. SODIUM VALPROATE [Suspect]
     Active Substance: VALPROATE SODIUM
     Indication: MENTAL DISORDER
     Dosage: 2250 MILLIGRAM, QD
     Route: 048
     Dates: start: 20150128, end: 20200128

REACTIONS (2)
  - Confusional state [Recovering/Resolving]
  - Antipsychotic drug level increased [Recovering/Resolving]

NARRATIVE: CASE EVENT DATE: 20200128
